FAERS Safety Report 7439251-0 (Version None)
Quarter: 2011Q2

REPORT INFORMATION
  Report Type: 
  Country: None (occurrence: None)
  Receive Date: 20110427
  Receipt Date: 20110418
  Transmission Date: 20111010
  Serious: Yes (Death, Life-Threatening, Hospitalization, Other)
  Sender: FDA-Public Use
  Company Number: JP-GENZYME-THYM-1002030

PATIENT
  Sex: Male
  Weight: 65 kg

DRUGS (316)
  1. THYMOGLOBULIN [Suspect]
     Dosage: 165 MG, QD
     Route: 042
     Dates: start: 20091104, end: 20091104
  2. TACROLIMUS [Concomitant]
     Dosage: UNK
     Dates: start: 20100218, end: 20100307
  3. CHLORPHENIRAMINE MALEATE [Concomitant]
     Dosage: UNK
     Dates: start: 20091021, end: 20091021
  4. CHLORPHENIRAMINE MALEATE [Concomitant]
     Dosage: UNK
     Dates: start: 20091111, end: 20091111
  5. CHLORPHENIRAMINE MALEATE [Concomitant]
     Dosage: UNK
     Dates: start: 20100202, end: 20100202
  6. AMPHOTERICIN B [Concomitant]
     Indication: PRODUCT USED FOR UNKNOWN INDICATION
     Dosage: UNK
     Dates: start: 20091009, end: 20091009
  7. UNASYN [Concomitant]
     Dosage: UNK
     Dates: start: 20100128, end: 20100201
  8. HYDROCORTISONE SODIUM SUCCINATE [Concomitant]
     Dosage: UNK
     Dates: start: 20100110, end: 20100110
  9. HYDROCORTISONE SODIUM SUCCINATE [Concomitant]
     Dosage: UNK
     Dates: start: 20100118, end: 20100118
  10. HYDROCORTISONE SODIUM SUCCINATE [Concomitant]
     Dosage: UNK
     Dates: start: 20100209, end: 20100216
  11. HYDROCORTISONE SODIUM SUCCINATE [Concomitant]
     Dosage: UNK
     Dates: start: 20100328, end: 20100328
  12. HYDROCORTISONE SODIUM SUCCINATE [Concomitant]
     Dosage: UNK
     Dates: start: 20100330, end: 20100330
  13. HEPARIN [Concomitant]
     Dosage: UNK
     Dates: start: 20100215, end: 20100215
  14. HEPARIN [Concomitant]
     Dosage: UNK
     Dates: start: 20100303, end: 20100305
  15. LACTATED RINGER'S [Concomitant]
     Indication: PRODUCT USED FOR UNKNOWN INDICATION
     Dosage: UNK
     Dates: start: 20091210, end: 20091226
  16. HYDROXYZINE HYDROCHLORIDE [Concomitant]
     Indication: PRODUCT USED FOR UNKNOWN INDICATION
     Dosage: UNK
     Dates: start: 20100226, end: 20100301
  17. ACICLOVIR [Concomitant]
     Indication: PRODUCT USED FOR UNKNOWN INDICATION
     Dosage: UNK
     Dates: start: 20091008, end: 20100331
  18. HEPARIN [Concomitant]
     Dosage: UNK
     Dates: start: 20100309, end: 20100309
  19. HYDROPHILIC OINTMENT [Concomitant]
     Dosage: UNK
     Dates: start: 20100309, end: 20100309
  20. BACTICORT [Concomitant]
     Dosage: UNK
     Dates: start: 20091020, end: 20091020
  21. BACTICORT [Concomitant]
     Dosage: UNK
     Dates: start: 20091023, end: 20091023
  22. AZULENE [Concomitant]
     Dosage: UNK
     Dates: start: 20091101, end: 20091101
  23. OXYCODONE HYDROCHLORIDE [Concomitant]
     Dosage: UNK
     Dates: start: 20100107, end: 20100116
  24. NIFEDIPINE [Concomitant]
     Dosage: UNK
     Dates: start: 20091102, end: 20091117
  25. SODIUM GUALENATE [Concomitant]
     Indication: PRODUCT USED FOR UNKNOWN INDICATION
     Dosage: UNK
     Dates: start: 20091020, end: 20091020
  26. AMLODIPINE [Concomitant]
     Dosage: UNK
     Dates: start: 20091115, end: 20100312
  27. ITRACONAZOLE [Concomitant]
     Indication: PRODUCT USED FOR UNKNOWN INDICATION
     Dosage: UNK
     Dates: start: 20091213, end: 20091224
  28. MAGNESIUM [Concomitant]
     Indication: PRODUCT USED FOR UNKNOWN INDICATION
     Dosage: UNK
     Dates: start: 20100107, end: 20100127
  29. SODIUM PICOSULFATE [Concomitant]
     Dosage: UNK
     Dates: start: 20100201, end: 20100201
  30. SODIUM PICOSULFATE [Concomitant]
     Dosage: UNK
     Dates: start: 20100206, end: 20100206
  31. SODIUM PICOSULFATE [Concomitant]
     Dosage: UNK
     Dates: start: 20100328, end: 20100328
  32. BROTIZOLAM [Concomitant]
     Dosage: UNK
     Dates: start: 20100208, end: 20100217
  33. BROTIZOLAM [Concomitant]
     Dosage: UNK
     Dates: start: 20100219, end: 20100305
  34. GENTAMICIN SULFATE [Concomitant]
     Dosage: UNK
     Dates: start: 20100325, end: 20100325
  35. TRAFERMIN [Concomitant]
     Indication: PRODUCT USED FOR UNKNOWN INDICATION
     Dosage: UNK
     Dates: start: 20100208, end: 20100208
  36. LANOCONAZOLE [Concomitant]
     Indication: PRODUCT USED FOR UNKNOWN INDICATION
     Dosage: UNK
     Dates: start: 20100316, end: 20100316
  37. LEVOFLOXACIN [Concomitant]
     Indication: PRODUCT USED FOR UNKNOWN INDICATION
     Dosage: UNK
     Dates: start: 20100319, end: 20100319
  38. LEVOFLOXACIN [Concomitant]
     Dosage: UNK
     Dates: start: 20091104, end: 20091113
  39. TACROLIMUS [Concomitant]
     Dosage: UNK
     Dates: start: 20100308, end: 20100328
  40. CHLORPHENIRAMINE MALEATE [Concomitant]
     Dosage: UNK
     Dates: start: 20091129, end: 20091129
  41. CHLORPHENIRAMINE MALEATE [Concomitant]
     Dosage: UNK
     Dates: start: 20100115, end: 20100115
  42. CHLORPHENIRAMINE MALEATE [Concomitant]
     Dosage: UNK
     Dates: start: 20100209, end: 20100209
  43. MEROPENEM [Concomitant]
     Dosage: UNK
     Dates: start: 20091111, end: 20091124
  44. HYDROCORTISONE SODIUM SUCCINATE [Concomitant]
     Dosage: UNK
     Dates: start: 20091021, end: 20091021
  45. HYDROCORTISONE SODIUM SUCCINATE [Concomitant]
     Dosage: UNK
     Dates: start: 20091028, end: 20091028
  46. HYDROCORTISONE SODIUM SUCCINATE [Concomitant]
     Dosage: UNK
     Dates: start: 20091031, end: 20091031
  47. HYDROCORTISONE SODIUM SUCCINATE [Concomitant]
     Dosage: UNK
     Dates: start: 20091108, end: 20091108
  48. HYDROCORTISONE SODIUM SUCCINATE [Concomitant]
     Dosage: UNK
     Dates: start: 20091111, end: 20091112
  49. HYDROCORTISONE SODIUM SUCCINATE [Concomitant]
     Dosage: UNK
     Dates: start: 20100113, end: 20100113
  50. HYDROCORTISONE SODIUM SUCCINATE [Concomitant]
     Dosage: UNK
     Dates: start: 20100303, end: 20100308
  51. IMMUNOGLOBULIN HUMAN NORMAL [Concomitant]
     Dosage: UNK
     Dates: start: 20091022, end: 20091022
  52. FUROSEMIDE [Concomitant]
     Dosage: UNK
     Dates: start: 20091022, end: 20091022
  53. FUROSEMIDE [Concomitant]
     Dosage: UNK
     Dates: start: 20091105, end: 20091107
  54. MICAFUNGIN SODIUM [Concomitant]
     Indication: PRODUCT USED FOR UNKNOWN INDICATION
     Dosage: UNK
     Dates: start: 20091111, end: 20091212
  55. MICAFUNGIN SODIUM [Concomitant]
     Dosage: UNK
     Dates: start: 20100217, end: 20100303
  56. HEPARIN [Concomitant]
     Dosage: UNK
     Dates: start: 20091121, end: 20091121
  57. HEPARIN [Concomitant]
     Dosage: UNK
     Dates: start: 20100207, end: 20100207
  58. HEPARIN [Concomitant]
     Dosage: UNK
     Dates: start: 20100210, end: 20100210
  59. HEPARIN [Concomitant]
     Dosage: UNK
     Dates: start: 20100212, end: 20100212
  60. HEPARIN [Concomitant]
     Dosage: UNK
     Dates: start: 20100323, end: 20100323
  61. METOCLOPRAMIDE [Concomitant]
     Dosage: UNK
     Dates: start: 20100219, end: 20100331
  62. LENOGRASTIM [Concomitant]
     Dosage: UNK
     Dates: start: 20100210, end: 20100211
  63. LENOGRASTIM [Concomitant]
     Dosage: UNK
     Dates: start: 20100222, end: 20100222
  64. LENOGRASTIM [Concomitant]
     Dosage: UNK
     Dates: start: 20100307, end: 20100307
  65. LENOGRASTIM [Concomitant]
     Dosage: UNK
     Dates: start: 20100315, end: 20100315
  66. LENOGRASTIM [Concomitant]
     Dosage: UNK
  67. ZINC SULFATE [Concomitant]
     Indication: PRODUCT USED FOR UNKNOWN INDICATION
     Dosage: UNK
     Dates: start: 20100319, end: 20100331
  68. URSODIOL [Concomitant]
     Indication: PRODUCT USED FOR UNKNOWN INDICATION
     Dosage: UNK
     Dates: start: 20091008, end: 20100331
  69. HEPARIN [Concomitant]
     Indication: PRODUCT USED FOR UNKNOWN INDICATION
     Dosage: UNK
  70. HEPARIN [Concomitant]
     Dosage: UNK
     Dates: start: 20091118, end: 20091118
  71. HYDROPHILIC OINTMENT [Concomitant]
     Dosage: UNK
     Dates: start: 20091012, end: 20091013
  72. BACTICORT [Concomitant]
     Dosage: UNK
     Dates: start: 20091028, end: 20091029
  73. AZULENE [Concomitant]
     Dosage: UNK
     Dates: start: 20091108, end: 20091108
  74. LIDOCAINE HYDROCHLORIDE [Concomitant]
     Dosage: UNK
     Dates: start: 20091028, end: 20091028
  75. NIFEDIPINE [Concomitant]
     Dosage: UNK
     Dates: start: 20100311, end: 20100331
  76. DIFLORASONE DIACETATE [Concomitant]
     Indication: PRODUCT USED FOR UNKNOWN INDICATION
     Dosage: UNK
     Dates: start: 20091031, end: 20091102
  77. INDOMETHACIN SODIUM [Concomitant]
     Indication: PRODUCT USED FOR UNKNOWN INDICATION
     Dosage: UNK
     Dates: start: 20100105, end: 20100105
  78. SODIUM PICOSULFATE [Concomitant]
     Dosage: UNK
     Dates: start: 20100120, end: 20100120
  79. LORAZEPAM [Concomitant]
     Indication: PRODUCT USED FOR UNKNOWN INDICATION
     Dosage: UNK
     Dates: start: 20100119, end: 20100128
  80. TRAFERMIN [Concomitant]
     Dosage: UNK
     Dates: start: 20100215, end: 20100215
  81. OXIDISED CELLULOSE [Concomitant]
     Indication: PRODUCT USED FOR UNKNOWN INDICATION
     Dosage: UNK
     Dates: start: 20100316, end: 20100316
  82. TACROLIMUS [Concomitant]
     Indication: ACUTE GRAFT VERSUS HOST DISEASE
     Dosage: UNK
     Dates: start: 20090823
  83. CHLORPHENIRAMINE MALEATE [Concomitant]
     Dosage: UNK
     Dates: start: 20091104, end: 20091104
  84. CHLORPHENIRAMINE MALEATE [Concomitant]
     Dosage: UNK
     Dates: start: 20091114, end: 20091114
  85. CHLORPHENIRAMINE MALEATE [Concomitant]
     Dosage: UNK
     Dates: start: 20100218, end: 20100218
  86. CHLORPHENIRAMINE MALEATE [Concomitant]
     Dosage: UNK
     Dates: start: 20100319, end: 20100319
  87. AMPHOTERICIN B [Concomitant]
     Dosage: UNK
     Dates: start: 20091013, end: 20091013
  88. MEROPENEM [Concomitant]
     Dosage: UNK
     Dates: start: 20091214, end: 20091224
  89. MEROPENEM [Concomitant]
     Dosage: UNK
     Dates: start: 20091230, end: 20100118
  90. HYDROCORTISONE SODIUM SUCCINATE [Concomitant]
     Dosage: UNK
     Dates: start: 20091123, end: 20091123
  91. HYDROCORTISONE SODIUM SUCCINATE [Concomitant]
     Dosage: UNK
     Dates: start: 20100108, end: 20100108
  92. HYDROCORTISONE SODIUM SUCCINATE [Concomitant]
     Dosage: UNK
     Dates: start: 20100310, end: 20100311
  93. FUROSEMIDE [Concomitant]
     Indication: PRODUCT USED FOR UNKNOWN INDICATION
     Dosage: UNK
     Dates: start: 20091016, end: 20091019
  94. ALBUMIN (HUMAN) [Concomitant]
     Dosage: UNK
     Dates: start: 20091028, end: 20091029
  95. INSULIN [Concomitant]
     Dosage: UNK
     Dates: start: 20100319, end: 20100331
  96. HEPARIN [Concomitant]
     Dosage: UNK
     Dates: start: 20091130, end: 20091226
  97. HEPARIN [Concomitant]
     Dosage: UNK
     Dates: start: 20091230, end: 20100114
  98. HEPARIN [Concomitant]
     Dosage: UNK
     Dates: start: 20100321, end: 20100321
  99. HEPARIN [Concomitant]
     Dosage: UNK
     Dates: start: 20100330, end: 20100330
  100. CLINDAMYCIN PHOSPHATE [Concomitant]
     Indication: PRODUCT USED FOR UNKNOWN INDICATION
     Dosage: UNK
     Dates: start: 20100201, end: 20100219
  101. TRANEXAMIC ACID [Concomitant]
     Indication: PRODUCT USED FOR UNKNOWN INDICATION
     Dosage: UNK
     Dates: start: 20100203, end: 20100318
  102. DORIPENEM HYDRATE [Concomitant]
     Indication: PRODUCT USED FOR UNKNOWN INDICATION
     Dosage: UNK
     Dates: start: 20100216, end: 20100219
  103. MINOCYCLINE HYDROCHLORIDE [Concomitant]
     Indication: PRODUCT USED FOR UNKNOWN INDICATION
     Dosage: UNK
     Dates: start: 20100219, end: 20100310
  104. HYDROXYZINE HYDROCHLORIDE [Concomitant]
     Dosage: UNK
     Dates: start: 20100313, end: 20100314
  105. HYDROXYZINE HYDROCHLORIDE [Concomitant]
     Dosage: UNK
     Dates: start: 20100319, end: 20100319
  106. CARPERITIDE [Concomitant]
     Indication: PRODUCT USED FOR UNKNOWN INDICATION
     Dosage: UNK
     Dates: start: 20100316, end: 20100329
  107. METHYLPREDNISOLONE SODIUM SUCCINATE [Concomitant]
     Dosage: UNK
     Dates: start: 20091205, end: 20100319
  108. HEPARIN [Concomitant]
     Dosage: UNK
     Dates: start: 20100222, end: 20100222
  109. WHITE PETROLEUM [Concomitant]
     Dosage: UNK
     Dates: start: 20100125, end: 20100125
  110. WHITE PETROLEUM [Concomitant]
     Dosage: UNK
     Dates: start: 20100129, end: 20100129
  111. BACTICORT [Concomitant]
     Indication: PRODUCT USED FOR UNKNOWN INDICATION
     Dosage: UNK
     Dates: start: 20091013, end: 20091016
  112. BACTICORT [Concomitant]
     Dosage: UNK
     Dates: start: 20100316, end: 20100317
  113. AZULENE [Concomitant]
     Dosage: UNK
     Dates: start: 20100316, end: 20100316
  114. LIDOCAINE HYDROCHLORIDE [Concomitant]
     Dosage: UNK
     Dates: start: 20091020, end: 20091020
  115. OXYCODONE HYDROCHLORIDE [Concomitant]
     Dosage: UNK
     Dates: start: 20091031, end: 20091113
  116. PROCHLORPERAZINE MALEATE [Concomitant]
     Indication: PRODUCT USED FOR UNKNOWN INDICATION
     Dosage: UNK
     Dates: start: 20091014, end: 20091027
  117. PROCHLORPERAZINE MALEATE [Concomitant]
     Dosage: UNK
     Dates: start: 20100106, end: 20100119
  118. NIFEDIPINE [Concomitant]
     Indication: PRODUCT USED FOR UNKNOWN INDICATION
     Dosage: UNK
     Dates: start: 20091018, end: 20091018
  119. CANDESARTAN CILEXETIL [Concomitant]
     Indication: PRODUCT USED FOR UNKNOWN INDICATION
     Dosage: UNK
     Dates: start: 20091127, end: 20091204
  120. CANDESARTAN CILEXETIL [Concomitant]
     Dosage: UNK
     Dates: start: 20100217, end: 20100312
  121. DEXAMETHASONE [Concomitant]
     Indication: PRODUCT USED FOR UNKNOWN INDICATION
     Dosage: UNK
     Dates: start: 20091127, end: 20091127
  122. GLYCERIN [Concomitant]
     Indication: PRODUCT USED FOR UNKNOWN INDICATION
     Dosage: UNK
     Dates: start: 20100107, end: 20100107
  123. SODIUM PICOSULFATE [Concomitant]
     Dosage: UNK
     Dates: start: 20100308, end: 20100308
  124. BISACODYL [Concomitant]
     Indication: PRODUCT USED FOR UNKNOWN INDICATION
     Dosage: UNK
     Dates: start: 20100113, end: 20100122
  125. BROTIZOLAM [Concomitant]
     Indication: PRODUCT USED FOR UNKNOWN INDICATION
     Dosage: UNK
     Dates: start: 20100113, end: 20100122
  126. ALCLOMETASONE DIPROPIONATE [Concomitant]
     Indication: PRODUCT USED FOR UNKNOWN INDICATION
     Dosage: UNK
     Dates: start: 20100316, end: 20100316
  127. TACROLIMUS [Concomitant]
     Dosage: UNK
     Dates: start: 20100218, end: 20100303
  128. HEPARIN [Concomitant]
     Indication: PRODUCT USED FOR UNKNOWN INDICATION
     Dosage: UNK
     Dates: start: 20091008, end: 20091201
  129. CHLORPHENIRAMINE MALEATE [Concomitant]
     Dosage: UNK
     Dates: start: 20091015, end: 20091015
  130. CHLORPHENIRAMINE MALEATE [Concomitant]
     Dosage: UNK
     Dates: start: 20091119, end: 20091119
  131. CHLORPHENIRAMINE MALEATE [Concomitant]
     Dosage: UNK
     Dates: start: 20091121, end: 20091121
  132. CHLORPHENIRAMINE MALEATE [Concomitant]
     Dosage: UNK
     Dates: start: 20100120, end: 20100120
  133. HYDROCORTISONE SODIUM SUCCINATE [Concomitant]
     Dosage: UNK
     Dates: start: 20091129, end: 20091129
  134. HYDROCORTISONE SODIUM SUCCINATE [Concomitant]
     Dosage: UNK
     Dates: start: 20091213, end: 20091213
  135. HYDROCORTISONE SODIUM SUCCINATE [Concomitant]
     Dosage: UNK
     Dates: start: 20100115, end: 20100115
  136. HYDROCORTISONE SODIUM SUCCINATE [Concomitant]
     Dosage: UNK
     Dates: start: 20100122, end: 20100122
  137. HYDROCORTISONE SODIUM SUCCINATE [Concomitant]
     Dosage: UNK
     Dates: start: 20100202, end: 20100205
  138. HYDROCORTISONE SODIUM SUCCINATE [Concomitant]
     Dosage: UNK
     Dates: start: 20100319, end: 20100319
  139. FUROSEMIDE [Concomitant]
     Dosage: UNK
     Dates: start: 20091031, end: 20091031
  140. FUROSEMIDE [Concomitant]
     Dosage: UNK
     Dates: start: 20091113, end: 20091113
  141. FUROSEMIDE [Concomitant]
     Dosage: UNK
     Dates: start: 20100312, end: 20100331
  142. FUROSEMIDE [Concomitant]
     Dosage: UNK
     Dates: start: 20091011, end: 20100319
  143. IMMUNOGLOBULIN HUMAN NORMAL [Concomitant]
     Dosage: UNK
     Dates: start: 20091128, end: 20091129
  144. HEPARIN [Concomitant]
     Dosage: UNK
     Dates: start: 20100325, end: 20100327
  145. HEPARIN [Concomitant]
     Dosage: UNK
     Dates: start: 20100330, end: 20100330
  146. LENOGRASTIM [Concomitant]
     Dosage: UNK
     Dates: start: 20100227, end: 20100227
  147. LENOGRASTIM [Concomitant]
     Dosage: UNK
     Dates: start: 20100325, end: 20100325
  148. CARBAZOCHROME SODIUM SULFONATE [Concomitant]
     Indication: PRODUCT USED FOR UNKNOWN INDICATION
     Dosage: UNK
     Dates: start: 20100203, end: 20100331
  149. HYDROXYZINE HYDROCHLORIDE [Concomitant]
     Dosage: UNK
     Dates: start: 20100316, end: 20100316
  150. FLURBIPROFEN [Concomitant]
     Dosage: UNK
     Dates: start: 20100328, end: 20100328
  151. MORPHINE HYDROCHLORIDE [Concomitant]
     Dosage: UNK
     Dates: start: 20100330, end: 20100331
  152. FAMOTIDINE [Concomitant]
     Indication: PRODUCT USED FOR UNKNOWN INDICATION
     Dosage: UNK
     Dates: start: 20100328, end: 20100331
  153. ACETAMINOPHEN [Concomitant]
     Indication: PRODUCT USED FOR UNKNOWN INDICATION
     Dosage: UNK
     Dates: start: 20091008, end: 20091008
  154. ACETAMINOPHEN [Concomitant]
     Dosage: UNK
     Dates: start: 20091104, end: 20091104
  155. AZULENE [Concomitant]
     Dosage: UNK
     Dates: start: 20091020, end: 20091020
  156. LIDOCAINE HYDROCHLORIDE [Concomitant]
     Dosage: UNK
     Dates: start: 20091104, end: 20091104
  157. TEPRENONE [Concomitant]
     Dosage: UNK
     Dates: start: 20100102, end: 20100111
  158. SODIUM GUALENATE [Concomitant]
     Dosage: UNK
     Dates: start: 20091103, end: 20091103
  159. CANDESARTAN CILEXETIL [Concomitant]
     Dosage: UNK
     Dates: start: 20100218, end: 20100226
  160. SODIUM PICOSULFATE [Concomitant]
     Dosage: UNK
     Dates: start: 20100117, end: 20100117
  161. SODIUM PICOSULFATE [Concomitant]
     Dosage: UNK
     Dates: start: 20100211, end: 20100211
  162. VORICONAZOLE [Concomitant]
     Indication: PRODUCT USED FOR UNKNOWN INDICATION
     Dosage: UNK
     Dates: start: 20100228, end: 20100319
  163. CORTICOSTEROIDS [Concomitant]
     Indication: GRAFT VERSUS HOST DISEASE
     Dosage: UNK
     Dates: start: 20090806
  164. TACROLIMUS [Concomitant]
     Dosage: UNK
     Dates: start: 20091129, end: 20100103
  165. TACROLIMUS [Concomitant]
     Dosage: UNK
     Dates: start: 20100319, end: 20100323
  166. CHLORPHENIRAMINE MALEATE [Concomitant]
     Dosage: UNK
     Dates: start: 20091025, end: 20091025
  167. CHLORPHENIRAMINE MALEATE [Concomitant]
     Dosage: UNK
     Dates: start: 20100110, end: 20100110
  168. CHLORPHENIRAMINE MALEATE [Concomitant]
     Dosage: UNK
     Dates: start: 20100113, end: 20100113
  169. MEROPENEM [Concomitant]
     Indication: PRODUCT USED FOR UNKNOWN INDICATION
     Dosage: UNK
     Dates: start: 20091015, end: 20091030
  170. HYDROCORTISONE SODIUM SUCCINATE [Concomitant]
     Dosage: UNK
     Dates: start: 20091025, end: 20091025
  171. HYDROCORTISONE SODIUM SUCCINATE [Concomitant]
     Dosage: UNK
     Dates: start: 20100218, end: 20100220
  172. HYDROCORTISONE SODIUM SUCCINATE [Concomitant]
     Dosage: UNK
     Dates: start: 20100313, end: 20100316
  173. HYDROCORTISONE SODIUM SUCCINATE [Concomitant]
     Dosage: UNK
     Dates: start: 20100321, end: 20100321
  174. FUROSEMIDE [Concomitant]
     Dosage: UNK
     Dates: start: 20100102, end: 20100102
  175. ALBUMIN (HUMAN) [Concomitant]
     Dosage: UNK
     Dates: start: 20091105, end: 20091107
  176. ALBUMIN (HUMAN) [Concomitant]
     Dosage: UNK
     Dates: start: 20100306, end: 20100306
  177. INSULIN [Concomitant]
     Dosage: UNK
  178. HYDROXYZINE HYDROCHLORIDE [Concomitant]
     Dosage: UNK
     Dates: start: 20100305, end: 20100308
  179. HYDROXYZINE HYDROCHLORIDE [Concomitant]
     Dosage: UNK
     Dates: start: 20100310, end: 20100311
  180. CARPERITIDE [Concomitant]
     Dosage: UNK
     Dates: start: 20100331, end: 20100331
  181. FLURBIPROFEN [Concomitant]
     Indication: PRODUCT USED FOR UNKNOWN INDICATION
     Dosage: UNK
     Dates: start: 20100324, end: 20100324
  182. HALOPERIDOL [Concomitant]
     Indication: PRODUCT USED FOR UNKNOWN INDICATION
     Dosage: UNK
     Dates: start: 20100325, end: 20100325
  183. MORPHINE HYDROCHLORIDE [Concomitant]
     Indication: PRODUCT USED FOR UNKNOWN INDICATION
     Dosage: UNK
     Dates: start: 20100326, end: 20100326
  184. MORPHINE HYDROCHLORIDE [Concomitant]
     Dosage: UNK
     Dates: start: 20100328, end: 20100328
  185. HYDROPHILIC OINTMENT [Concomitant]
     Indication: PRODUCT USED FOR UNKNOWN INDICATION
     Dosage: UNK
     Dates: start: 20091010, end: 20091010
  186. HYDROPHILIC OINTMENT [Concomitant]
     Dosage: UNK
     Dates: start: 20091015, end: 20091015
  187. POTASSIUM [Concomitant]
     Indication: PRODUCT USED FOR UNKNOWN INDICATION
     Dosage: UNK
     Dates: start: 20091011, end: 20091127
  188. WHITE PETROLEUM [Concomitant]
     Indication: PRODUCT USED FOR UNKNOWN INDICATION
     Dosage: UNK
     Dates: start: 20091012, end: 20091013
  189. AZULENE [Concomitant]
     Dosage: UNK
     Dates: start: 20091023, end: 20091023
  190. OXYCODONE HYDROCHLORIDE [Concomitant]
     Dosage: UNK
     Dates: start: 20091014, end: 20091117
  191. OXYCODONE HYDROCHLORIDE [Concomitant]
     Dosage: UNK
     Dates: start: 20100115, end: 20100121
  192. TEPRENONE [Concomitant]
     Indication: PRODUCT USED FOR UNKNOWN INDICATION
     Dosage: UNK
     Dates: start: 20091015, end: 20091024
  193. NIFEDIPINE [Concomitant]
     Dosage: UNK
     Dates: start: 20100304, end: 20100313
  194. OFLOXACIN [Concomitant]
     Indication: PRODUCT USED FOR UNKNOWN INDICATION
     Dosage: UNK
     Dates: start: 20091021, end: 20091021
  195. AMLODIPINE [Concomitant]
     Indication: PRODUCT USED FOR UNKNOWN INDICATION
     Dosage: UNK
     Dates: start: 20091109, end: 20091120
  196. ITRACONAZOLE [Concomitant]
     Dosage: UNK
     Dates: start: 20091226, end: 20100305
  197. GLYCERIN [Concomitant]
     Dosage: UNK
     Dates: start: 20100120, end: 20100120
  198. SODIUM PICOSULFATE [Concomitant]
     Indication: PRODUCT USED FOR UNKNOWN INDICATION
     Dosage: UNK
     Dates: start: 20100109, end: 20100109
  199. CELECOXIB [Concomitant]
     Indication: PRODUCT USED FOR UNKNOWN INDICATION
     Dosage: UNK
     Dates: start: 20100118, end: 20100305
  200. TRAFERMIN [Concomitant]
     Dosage: UNK
     Dates: start: 20100312, end: 20100312
  201. KETOCONAZOLE [Concomitant]
     Indication: PRODUCT USED FOR UNKNOWN INDICATION
     Dosage: UNK
     Dates: start: 20100226, end: 20100226
  202. TIMOLOL MALEATE [Concomitant]
     Indication: PRODUCT USED FOR UNKNOWN INDICATION
     Dosage: UNK
     Dates: start: 20100319, end: 20100319
  203. CHLORPHENIRAMINE MALEATE [Concomitant]
     Indication: PRODUCT USED FOR UNKNOWN INDICATION
     Dosage: UNK
     Dates: start: 20091008, end: 20091008
  204. CHLORPHENIRAMINE MALEATE [Concomitant]
     Dosage: UNK
     Dates: start: 20091102, end: 20091102
  205. CHLORPHENIRAMINE MALEATE [Concomitant]
     Dosage: UNK
     Dates: start: 20100126, end: 20100126
  206. CHLORPHENIRAMINE MALEATE [Concomitant]
     Dosage: UNK
     Dates: start: 20100222, end: 20100222
  207. UNASYN [Concomitant]
     Indication: PRODUCT USED FOR UNKNOWN INDICATION
     Dosage: UNK
     Dates: start: 20091014, end: 20091030
  208. MEROPENEM [Concomitant]
     Dosage: UNK
     Dates: start: 20100125, end: 20100128
  209. HYDROCORTISONE SODIUM SUCCINATE [Concomitant]
     Dosage: UNK
     Dates: start: 20091119, end: 20091119
  210. HYDROCORTISONE SODIUM SUCCINATE [Concomitant]
     Dosage: UNK
     Dates: start: 20091206, end: 20091206
  211. HYDROCORTISONE SODIUM SUCCINATE [Concomitant]
     Dosage: UNK
     Dates: start: 20100222, end: 20100301
  212. HYDROCORTISONE SODIUM SUCCINATE [Concomitant]
     Dosage: UNK
     Dates: start: 20100323, end: 20100324
  213. IMMUNOGLOBULIN HUMAN NORMAL [Concomitant]
     Dosage: UNK
     Dates: start: 20100227, end: 20100228
  214. ALBUMIN (HUMAN) [Concomitant]
     Indication: PRODUCT USED FOR UNKNOWN INDICATION
     Dosage: UNK
     Dates: start: 20091017, end: 20091019
  215. ALBUMIN (HUMAN) [Concomitant]
     Dosage: UNK
     Dates: start: 20100205, end: 20100205
  216. INSULIN [Concomitant]
     Indication: PRODUCT USED FOR UNKNOWN INDICATION
     Dosage: UNK
     Dates: start: 20091105, end: 20091127
  217. MICAFUNGIN SODIUM [Concomitant]
     Dosage: UNK
     Dates: start: 20100313, end: 20100314
  218. METOCLOPRAMIDE [Concomitant]
     Indication: PRODUCT USED FOR UNKNOWN INDICATION
     Dosage: UNK
     Dates: start: 20100117, end: 20100216
  219. LENOGRASTIM [Concomitant]
     Dosage: UNK
     Dates: start: 20100213, end: 20100214
  220. CLINDAMYCIN PHOSPHATE [Concomitant]
     Dosage: UNK
     Dates: start: 20100325, end: 20100331
  221. CEFEPIME HYDROCHLORIDE [Concomitant]
     Indication: PRODUCT USED FOR UNKNOWN INDICATION
     Dosage: UNK
     Dates: start: 20100219, end: 20100310
  222. CEFEPIME HYDROCHLORIDE [Concomitant]
     Dosage: UNK
     Dates: start: 20100315, end: 20100331
  223. HYDROXYZINE HYDROCHLORIDE [Concomitant]
     Dosage: UNK
     Dates: start: 20100303, end: 20100303
  224. AZULENE [Concomitant]
     Dosage: UNK
     Dates: start: 20100125, end: 20100125
  225. LIDOCAINE HYDROCHLORIDE [Concomitant]
     Dosage: UNK
     Dates: start: 20091023, end: 20091023
  226. LIDOCAINE HYDROCHLORIDE [Concomitant]
     Dosage: UNK
     Dates: start: 20091108, end: 20091108
  227. OXYCODONE HYDROCHLORIDE [Concomitant]
     Indication: PRODUCT USED FOR UNKNOWN INDICATION
     Dosage: UNK
     Dates: start: 20091014, end: 20091030
  228. LOXOPROFEN SODIUM [Concomitant]
     Dosage: UNK
     Dates: start: 20100102, end: 20100111
  229. LOXOPROFEN SODIUM [Concomitant]
     Dosage: UNK
     Dates: start: 20100218, end: 20100227
  230. TEPRENONE [Concomitant]
     Dosage: UNK
     Dates: start: 20100218, end: 20100227
  231. NIFEDIPINE [Concomitant]
     Dosage: UNK
     Dates: start: 20100220, end: 20100301
  232. POVIDONE IODINE [Concomitant]
     Indication: PRODUCT USED FOR UNKNOWN INDICATION
     Dosage: UNK
     Dates: start: 20091030, end: 20091030
  233. EPERISONE HYDROCHLORIDE [Concomitant]
     Indication: PRODUCT USED FOR UNKNOWN INDICATION
     Dosage: UNK
     Dates: start: 20100106, end: 20100202
  234. GENTAMICIN SULFATE [Concomitant]
     Indication: PRODUCT USED FOR UNKNOWN INDICATION
     Dosage: UNK
     Dates: start: 20100206, end: 20100206
  235. TRAFERMIN [Concomitant]
     Dosage: UNK
     Dates: start: 20100325, end: 20100325
  236. RABEPRAZOLE SODIUM [Concomitant]
     Indication: PRODUCT USED FOR UNKNOWN INDICATION
     Dosage: UNK
     Dates: start: 20100308, end: 20100331
  237. DIPHENHYDRAMINE [Concomitant]
     Indication: PRODUCT USED FOR UNKNOWN INDICATION
     Dosage: UNK
     Dates: start: 20100312, end: 20100312
  238. TRICHLORMETHIAZIDE [Concomitant]
     Indication: PRODUCT USED FOR UNKNOWN INDICATION
     Dosage: UNK
     Dates: start: 20100325, end: 20100329
  239. TACROLIMUS [Concomitant]
     Dosage: UNK
     Dates: start: 20100312, end: 20100317
  240. CHLORPHENIRAMINE MALEATE [Concomitant]
     Dosage: UNK
     Dates: start: 20091028, end: 20091028
  241. CHLORPHENIRAMINE MALEATE [Concomitant]
     Dosage: UNK
     Dates: start: 20091031, end: 20091031
  242. CHLORPHENIRAMINE MALEATE [Concomitant]
     Dosage: UNK
     Dates: start: 20091204, end: 20091204
  243. CHLORPHENIRAMINE MALEATE [Concomitant]
     Dosage: UNK
     Dates: start: 20091206, end: 20091206
  244. CHLORPHENIRAMINE MALEATE [Concomitant]
     Dosage: UNK
     Dates: start: 20100130, end: 20100130
  245. HYDROCORTISONE SODIUM SUCCINATE [Concomitant]
     Indication: PRODUCT USED FOR UNKNOWN INDICATION
     Dosage: UNK
     Dates: start: 20091015, end: 20091015
  246. HYDROCORTISONE SODIUM SUCCINATE [Concomitant]
     Dosage: UNK
     Dates: start: 20091204, end: 20091204
  247. IMMUNOGLOBULIN HUMAN NORMAL [Concomitant]
     Indication: PRODUCT USED FOR UNKNOWN INDICATION
     Dosage: UNK
     Dates: start: 20091016, end: 20091016
  248. FUROSEMIDE [Concomitant]
     Dosage: UNK
     Dates: start: 20091028, end: 20091028
  249. FUROSEMIDE [Concomitant]
     Dosage: UNK
     Dates: start: 20100305, end: 20100306
  250. HEPARIN [Concomitant]
     Dosage: UNK
     Dates: start: 20091125, end: 20091128
  251. HEPARIN [Concomitant]
     Dosage: UNK
     Dates: start: 20100317, end: 20100317
  252. PANTHENOL [Concomitant]
     Indication: PRODUCT USED FOR UNKNOWN INDICATION
     Dosage: UNK
     Dates: start: 20100117, end: 20100216
  253. PANTHENOL [Concomitant]
     Dosage: UNK
     Dates: start: 20100219, end: 20100331
  254. HYDROXYZINE HYDROCHLORIDE [Concomitant]
     Dosage: UNK
     Dates: start: 20100321, end: 20100321
  255. HYDROXYZINE HYDROCHLORIDE [Concomitant]
     Dosage: UNK
     Dates: start: 20100323, end: 20100323
  256. METHYLPREDNISOLONE SODIUM SUCCINATE [Concomitant]
     Indication: PRODUCT USED FOR UNKNOWN INDICATION
     Dosage: UNK
     Dates: start: 20100316, end: 20100331
  257. HALOPERIDOL [Concomitant]
     Dosage: UNK
     Dates: start: 20100327, end: 20100327
  258. ISONIAZID [Concomitant]
     Indication: PRODUCT USED FOR UNKNOWN INDICATION
     Dosage: UNK
     Dates: start: 20091008, end: 20100319
  259. HEPARIN [Concomitant]
     Dosage: UNK
     Dates: start: 20091202, end: 20091202
  260. HEPARIN [Concomitant]
     Dosage: UNK
     Dates: start: 20091217, end: 20091217
  261. HEPARIN [Concomitant]
     Dosage: UNK
     Dates: start: 20100312, end: 20100312
  262. HEPARIN [Concomitant]
     Dosage: UNK
     Dates: start: 20100325, end: 20100325
  263. AZULENE [Concomitant]
     Dosage: UNK
     Dates: start: 20091104, end: 20091104
  264. AZULENE [Concomitant]
     Dosage: UNK
     Dates: start: 20100304, end: 20100304
  265. POVIDONE IODINE [Concomitant]
     Dosage: UNK
     Dates: start: 20100201, end: 20100201
  266. MECOBALAMIN [Concomitant]
     Indication: PRODUCT USED FOR UNKNOWN INDICATION
     Dosage: UNK
     Dates: start: 20091120, end: 20100319
  267. ITRACONAZOLE [Concomitant]
     Dosage: UNK
     Dates: start: 20100315, end: 20100328
  268. GLYCERIN [Concomitant]
     Dosage: UNK
     Dates: start: 20100122, end: 20100122
  269. MAGNESIUM [Concomitant]
     Dosage: UNK
     Dates: start: 20100129, end: 20100204
  270. MAGNESIUM [Concomitant]
     Dosage: UNK
     Dates: start: 20100206, end: 20100331
  271. SODIUM PICOSULFATE [Concomitant]
     Dosage: UNK
     Dates: start: 20100222, end: 20100222
  272. THYMOGLOBULIN [Suspect]
     Indication: ACUTE GRAFT VERSUS HOST DISEASE
     Dosage: 70 MG, QD
     Route: 042
     Dates: start: 20091008, end: 20091008
  273. TACROLIMUS [Concomitant]
     Dosage: UNK
     Dates: start: 20100105, end: 20100216
  274. TACROLIMUS [Concomitant]
     Dosage: UNK
     Dates: start: 20100108, end: 20100216
  275. CHLORPHENIRAMINE MALEATE [Concomitant]
     Dosage: UNK
     Dates: start: 20091106, end: 20091106
  276. CHLORPHENIRAMINE MALEATE [Concomitant]
     Dosage: UNK
     Dates: start: 20091108, end: 20091108
  277. CHLORPHENIRAMINE MALEATE [Concomitant]
     Dosage: UNK
     Dates: start: 20091213, end: 20091213
  278. CHLORPHENIRAMINE MALEATE [Concomitant]
     Dosage: UNK
     Dates: start: 20100108, end: 20100108
  279. CHLORPHENIRAMINE MALEATE [Concomitant]
     Dosage: UNK
     Dates: start: 20100118, end: 20100118
  280. CHLORPHENIRAMINE MALEATE [Concomitant]
     Dosage: UNK
     Dates: start: 20100122, end: 20100122
  281. AMPHOTERICIN B [Concomitant]
     Dosage: UNK
     Dates: start: 20091011, end: 20091011
  282. HYDROCORTISONE SODIUM SUCCINATE [Concomitant]
     Dosage: UNK
     Dates: start: 20091102, end: 20091102
  283. HYDROCORTISONE SODIUM SUCCINATE [Concomitant]
     Dosage: UNK
     Dates: start: 20091106, end: 20091106
  284. HYDROCORTISONE SODIUM SUCCINATE [Concomitant]
     Dosage: UNK
     Dates: start: 20091114, end: 20091114
  285. HYDROCORTISONE SODIUM SUCCINATE [Concomitant]
     Dosage: UNK
     Dates: start: 20091121, end: 20091121
  286. HYDROCORTISONE SODIUM SUCCINATE [Concomitant]
     Dosage: UNK
     Dates: start: 20100120, end: 20100120
  287. HYDROCORTISONE SODIUM SUCCINATE [Concomitant]
     Dosage: UNK
     Dates: start: 20100126, end: 20100128
  288. HYDROCORTISONE SODIUM SUCCINATE [Concomitant]
     Dosage: UNK
     Dates: start: 20100130, end: 20100130
  289. IMMUNOGLOBULIN HUMAN NORMAL [Concomitant]
     Dosage: UNK
     Dates: start: 20091030, end: 20091030
  290. ALBUMIN (HUMAN) [Concomitant]
     Dosage: UNK
     Dates: start: 20100312, end: 20100313
  291. ALBUMIN (HUMAN) [Concomitant]
     Dosage: UNK
     Dates: start: 20100323, end: 20100324
  292. IMMUNOGLOBULIN HUMAN NORMAL [Concomitant]
     Dosage: UNK
     Dates: start: 20091111, end: 20091111
  293. HEPARIN [Concomitant]
     Dosage: UNK
     Dates: start: 20100116, end: 20100127
  294. HEPARIN [Concomitant]
     Dosage: UNK
     Dates: start: 20100129, end: 20100202
  295. HEPARIN [Concomitant]
     Dosage: UNK
     Dates: start: 20100205, end: 20100205
  296. HEPARIN [Concomitant]
     Dosage: UNK
     Dates: start: 20100226, end: 20100226
  297. HEPARIN [Concomitant]
     Dosage: UNK
     Dates: start: 20100310, end: 20100313
  298. LENOGRASTIM [Concomitant]
     Indication: PRODUCT USED FOR UNKNOWN INDICATION
     Dosage: UNK
     Dates: start: 20100128, end: 20100208
  299. LENOGRASTIM [Concomitant]
     Dosage: UNK
     Dates: start: 20100303, end: 20100303
  300. CEFTAZIDIME [Concomitant]
     Indication: PRODUCT USED FOR UNKNOWN INDICATION
     Dosage: UNK
     Dates: start: 20100201, end: 20100216
  301. HYDROXYZINE HYDROCHLORIDE [Concomitant]
     Dosage: UNK
     Dates: start: 20100330, end: 20100330
  302. FERRIC CHLORIDE [Concomitant]
     Indication: PRODUCT USED FOR UNKNOWN INDICATION
     Dosage: UNK
     Dates: start: 20100319, end: 20100331
  303. NYSTATIN [Concomitant]
     Indication: PRODUCT USED FOR UNKNOWN INDICATION
     Dosage: UNK
     Dates: start: 20091008, end: 20100331
  304. HEPARIN [Concomitant]
     Dosage: UNK
     Dates: start: 20091129, end: 20091129
  305. AZULENE [Concomitant]
     Indication: PRODUCT USED FOR UNKNOWN INDICATION
     Dosage: UNK
     Dates: start: 20091013, end: 20091016
  306. AZULENE [Concomitant]
     Dosage: UNK
     Dates: start: 20091028, end: 20091028
  307. AZULENE [Concomitant]
     Dosage: UNK
     Dates: start: 20091031, end: 20091031
  308. LIDOCAINE HYDROCHLORIDE [Concomitant]
     Indication: PRODUCT USED FOR UNKNOWN INDICATION
     Dosage: UNK
     Dates: start: 20091014, end: 20091016
  309. LIDOCAINE HYDROCHLORIDE [Concomitant]
     Dosage: UNK
     Dates: start: 20091104, end: 20091113
  310. OXYCODONE HYDROCHLORIDE [Concomitant]
     Dosage: UNK
     Dates: start: 20100106, end: 20100119
  311. LOXOPROFEN SODIUM [Concomitant]
     Indication: PRODUCT USED FOR UNKNOWN INDICATION
     Dosage: UNK
     Dates: start: 20091015, end: 20091024
  312. POVIDONE IODINE [Concomitant]
     Dosage: UNK
     Dates: start: 20091202, end: 20091202
  313. LORAZEPAM [Concomitant]
     Dosage: UNK
     Dates: start: 20100317, end: 20100326
  314. TRAFERMIN [Concomitant]
     Dosage: UNK
     Dates: start: 20100226, end: 20100226
  315. LANOCONAZOLE [Concomitant]
     Dosage: UNK
     Dates: start: 20100325, end: 20100325
  316. OXIDISED CELLULOSE [Concomitant]
     Dosage: UNK
     Dates: start: 20100326, end: 20100326

REACTIONS (6)
  - FEBRILE NEUTROPENIA [None]
  - STAPHYLOCOCCAL SEPSIS [None]
  - RENAL FAILURE [None]
  - CELLULITIS STAPHYLOCOCCAL [None]
  - CELLULITIS [None]
  - FUNGAL INFECTION [None]
